FAERS Safety Report 14887109 (Version 1)
Quarter: 2018Q2

REPORT INFORMATION
  Report Type: Spontaneous
  Country: FI (occurrence: FI)
  Receive Date: 20180512
  Receipt Date: 20180512
  Transmission Date: 20180711
  Serious: Yes (Hospitalization)
  Sender: FDA-Public Use
  Company Number: FI-009507513-1805FIN004507

PATIENT
  Age: 31 Year
  Sex: Female

DRUGS (3)
  1. ASACOL [Concomitant]
     Active Substance: MESALAMINE
     Indication: COLITIS ULCERATIVE
     Dosage: 3200 MG, DAILY
     Route: 048
  2. NUVARING [Suspect]
     Active Substance: ETHINYL ESTRADIOL\ETONOGESTREL
     Indication: CONTRACEPTION
     Dosage: 1 DF, CYCLICAL
     Route: 067
     Dates: start: 201708, end: 201803
  3. AZAMUN [Concomitant]
     Active Substance: AZATHIOPRINE
     Indication: COLITIS ULCERATIVE
     Dosage: 100 MG, DAILY
     Route: 048

REACTIONS (1)
  - Pregnancy with contraceptive device [Not Recovered/Not Resolved]

NARRATIVE: CASE EVENT DATE: 201802
